FAERS Safety Report 9708217 (Version 1)
Quarter: 2013Q4

REPORT INFORMATION
  Report Type: Spontaneous
  Country: US (occurrence: None)
  Receive Date: 20131122
  Receipt Date: 20131122
  Transmission Date: 20140711
  Serious: Yes (Hospitalization)
  Sender: FDA-Public Use
  Company Number: None

PATIENT
  Age: 63 None
  Sex: Male

DRUGS (2)
  1. MORPHINE [Suspect]
     Indication: PAIN
     Route: 048
     Dates: start: 20131106, end: 20131112
  2. HYDROMORPHONE [Suspect]
     Indication: PAIN
     Route: 048
     Dates: start: 20131106, end: 20131112

REACTIONS (4)
  - Somnolence [None]
  - Overdose [None]
  - Sedation [None]
  - Respiratory depression [None]
